FAERS Safety Report 23943882 (Version 2)
Quarter: 2024Q3

REPORT INFORMATION
  Report Type: Report from Study
  Country: US (occurrence: US)
  Receive Date: 20240606
  Receipt Date: 20240705
  Transmission Date: 20241017
  Serious: Yes (Hospitalization)
  Sender: NOVARTIS
  Company Number: US-002147023-NVSC2024US115979

PATIENT
  Sex: Male

DRUGS (2)
  1. ENTRESTO [Suspect]
     Active Substance: SACUBITRIL\VALSARTAN
     Indication: Hypertension
     Dosage: UNK UNK, BID
     Route: 048
     Dates: start: 202405
  2. ENTRESTO [Suspect]
     Active Substance: SACUBITRIL\VALSARTAN
     Indication: Lower respiratory tract infection

REACTIONS (5)
  - Renal failure [Unknown]
  - Blood potassium increased [Unknown]
  - Lethargy [Unknown]
  - Asthenia [Unknown]
  - Muscle spasms [Unknown]
